FAERS Safety Report 9358367 (Version 1)
Quarter: 2013Q2

REPORT INFORMATION
  Report Type: Spontaneous
  Country: US (occurrence: US)
  Receive Date: 20130620
  Receipt Date: 20130620
  Transmission Date: 20140414
  Serious: Yes (Other)
  Sender: FDA-Public Use
  Company Number: US-PERRIGO-13US006241

PATIENT
  Age: 66 Year
  Sex: Male
  Weight: 117.91 kg

DRUGS (9)
  1. LORATADINE 10 MG 612 [Suspect]
     Indication: SINUS CONGESTION
     Dosage: 10 MG, QD
     Route: 048
     Dates: start: 20130609, end: 20130610
  2. LORATADINE 10 MG 612 [Suspect]
     Indication: RHINORRHOEA
  3. METFORMIN [Concomitant]
     Indication: DIABETES MELLITUS
     Dosage: UNK
     Route: 048
  4. TRIAMTERENE [Concomitant]
     Indication: PRODUCT USED FOR UNKNOWN INDICATION
     Dosage: UNK
     Route: 048
  5. LISINOPRIL [Concomitant]
     Indication: HYPERTENSION
     Dosage: UNK
     Route: 048
  6. ALLOPURINOL [Concomitant]
     Indication: HYPERTENSION
     Dosage: UNK
     Route: 048
  7. BYSTOLIC [Concomitant]
     Indication: HYPERTENSION
     Dosage: UNK
     Route: 048
     Dates: start: 2011
  8. PREDNISONE [Concomitant]
     Indication: RHEUMATOID ARTHRITIS
     Dosage: UNK, PRN
     Route: 048
  9. COLCRYS [Concomitant]
     Indication: RHEUMATOID ARTHRITIS
     Dosage: UNK, QD
     Route: 065

REACTIONS (6)
  - Throat tightness [Not Recovered/Not Resolved]
  - Dyspnoea [Not Recovered/Not Resolved]
  - Hypoglycaemia [Recovered/Resolved]
  - Dry throat [Recovered/Resolved]
  - Dysphagia [Not Recovered/Not Resolved]
  - Off label use [Recovered/Resolved]
